FAERS Safety Report 19895272 (Version 1)
Quarter: 2021Q3

REPORT INFORMATION
  Report Type: Spontaneous
  Country: US (occurrence: US)
  Receive Date: 20210929
  Receipt Date: 20210929
  Transmission Date: 20211014
  Serious: No
  Sender: FDA-Public Use
  Company Number: None

PATIENT
  Age: 69 Year
  Sex: Male
  Weight: 142 kg

DRUGS (1)
  1. APIXABAN (APIXABAN 5MG TAB) [Suspect]
     Active Substance: APIXABAN
     Indication: ATRIAL FIBRILLATION
     Dates: start: 20191214

REACTIONS (9)
  - Haematocrit decreased [None]
  - Haemorrhoids [None]
  - Hypotension [None]
  - Blood pressure systolic decreased [None]
  - Oesophagogastroduodenoscopy abnormal [None]
  - Varices oesophageal [None]
  - Rectal haemorrhage [None]
  - Haemoglobin decreased [None]
  - Melaena [None]

NARRATIVE: CASE EVENT DATE: 20210615
